FAERS Safety Report 9565078 (Version 2)
Quarter: 2013Q3

REPORT INFORMATION
  Report Type: Report from Study
  Country: US (occurrence: US)
  Receive Date: 20130930
  Receipt Date: 20130930
  Transmission Date: 20140515
  Serious: Yes (Other)
  Sender: FDA-Public Use
  Company Number: US-UCBSA-077613

PATIENT
  Age: 22 Year
  Sex: Female
  Weight: 63.5 kg

DRUGS (2)
  1. CIMZIA [Suspect]
     Indication: CROHN^S DISEASE
     Dates: start: 20120322
  2. CIMZIA [Suspect]
     Indication: CROHN^S DISEASE
     Dates: start: 20120126, end: 20120223

REACTIONS (2)
  - Caesarean section [Unknown]
  - Pregnancy [Recovered/Resolved]
